FAERS Safety Report 9706737 (Version 1)
Quarter: 2013Q4

REPORT INFORMATION
  Report Type: Report from Study
  Country: BE (occurrence: BE)
  Receive Date: 20131125
  Receipt Date: 20131125
  Transmission Date: 20140711
  Serious: Yes (Death, Hospitalization)
  Sender: FDA-Public Use
  Company Number: BE-AMGEN-BELCT2013081883

PATIENT
  Age: 77 Year
  Sex: Female
  Weight: 56 kg

DRUGS (12)
  1. ETANERCEPT [Suspect]
     Indication: RHEUMATOID ARTHRITIS
     Dosage: 50 MG, QWK
     Route: 058
     Dates: start: 20071210, end: 20081226
  2. LEDERTREXATE                       /00113802/ [Concomitant]
     Indication: RHEUMATOID ARTHRITIS
     Dosage: 10 MG, WEEKLY
     Route: 048
     Dates: start: 20070918, end: 20081226
  3. ALLOPURINOL [Concomitant]
     Indication: GOUT
     Dosage: 300 MG, 1X/DAY
     Route: 048
  4. CARDIOASPIRIN [Concomitant]
     Dosage: UNK UNK, UNK
     Route: 048
  5. LIPITOR [Concomitant]
     Dosage: UNK UNK, UNK
     Route: 048
  6. CACIT VITAMINE D3 [Concomitant]
     Dosage: UNK UNK, UNK
     Route: 048
  7. CIPRALEX                           /01588501/ [Concomitant]
     Dosage: UNK UNK, UNK
  8. ACCURETIC [Concomitant]
     Dosage: UNK UNK, UNK
     Route: 048
  9. LORMETAZEPAM [Concomitant]
     Dosage: UNK UNK, UNK
     Route: 048
  10. SELOZOK [Concomitant]
     Dosage: UNK UNK, UNK
     Route: 048
  11. OMEPRAZOLE [Concomitant]
     Dosage: UNK UNK, UNK
     Route: 048
  12. ACTONEL [Concomitant]
     Dosage: UNK UNK, UNK
     Route: 048

REACTIONS (3)
  - Leukopenia [Fatal]
  - Thrombocytopenia [Fatal]
  - Pneumonia [Fatal]
